FAERS Safety Report 8399075-7 (Version None)
Quarter: 2012Q2

REPORT INFORMATION
  Report Type: 
  Country: None (occurrence: None)
  Receive Date: 20120525
  Receipt Date: 20120523
  Transmission Date: 20120825
  Serious: Yes (Other)
  Sender: FDA-Public Use
  Company Number: ADR-2012-00797

PATIENT
  Sex: Female

DRUGS (4)
  1. BACLOFEN [Suspect]
     Indication: PAIN
  2. BACLOFEN [Suspect]
     Indication: POST LAMINECTOMY SYNDROME
  3. HYDROMORPHONE HCL [Concomitant]
  4. BUPIVACINE [Concomitant]

REACTIONS (7)
  - CONDITION AGGRAVATED [None]
  - PAIN [None]
  - INFECTION [None]
  - PAIN IN EXTREMITY [None]
  - DEVICE BREAKAGE [None]
  - DEVICE CONNECTION ISSUE [None]
  - ERYTHEMA [None]
